FAERS Safety Report 4323644-4 (Version None)
Quarter: 2004Q1

REPORT INFORMATION
  Report Type: 
  Country: None (occurrence: None)
  Receive Date: 20040323
  Receipt Date: 20040317
  Transmission Date: 20041129
  Serious: Yes (Other)
  Sender: FDA-Public Use
  Company Number: 163-20785-04030453

PATIENT
  Sex: Male

DRUGS (1)
  1. THALOMID [Suspect]
     Indication: CROHN'S DISEASE
     Dosage: ORAL
     Route: 048

REACTIONS (2)
  - TRANSMISSION OF DRUG VIA SEMEN [None]
  - TWIN PREGNANCY [None]
